FAERS Safety Report 11620404 (Version 1)
Quarter: 2015Q4

REPORT INFORMATION
  Report Type: Spontaneous
  Country: US (occurrence: US)
  Receive Date: 20151012
  Receipt Date: 20151012
  Transmission Date: 20160304
  Serious: Yes (Hospitalization, Other)
  Sender: FDA-Public Use
  Company Number: US-B.I. PHARMACEUTICALS,INC./RIDGEFIELD-2015-BI-54901BI

PATIENT
  Age: 68 Year
  Sex: Female

DRUGS (4)
  1. GILOTRIF [Suspect]
     Active Substance: AFATINIB
     Indication: NON-SMALL CELL LUNG CANCER RECURRENT
     Dosage: 40 MG
     Route: 065
  2. PANITUMUMAB [Suspect]
     Active Substance: PANITUMUMAB
     Indication: NON-SMALL CELL LUNG CANCER RECURRENT
     Dosage: STRENGTH: 6 MG/KG
     Route: 065
  3. CETUXIMAB [Suspect]
     Active Substance: CETUXIMAB
     Indication: NON-SMALL CELL LUNG CANCER RECURRENT
     Dosage: STRENGTH:400 MG/M2
     Route: 065
  4. PANITUMUMAB [Suspect]
     Active Substance: PANITUMUMAB
     Dosage: STRENGTH: 3 MG/KG
     Route: 065

REACTIONS (4)
  - Metastases to abdominal cavity [Unknown]
  - Diarrhoea [Unknown]
  - Hypersensitivity [Unknown]
  - Metastases to meninges [Unknown]
